APPROVED DRUG PRODUCT: ALBUTEROL SULFATE AND IPRATROPIUM BROMIDE
Active Ingredient: ALBUTEROL SULFATE; IPRATROPIUM BROMIDE
Strength: EQ 0.083% BASE;0.017%
Dosage Form/Route: SOLUTION;INHALATION
Application: A207875 | Product #001 | TE Code: AN
Applicant: SUN PHARMACEUTICAL INDUSTRIES LTD
Approved: Aug 7, 2017 | RLD: No | RS: No | Type: RX